FAERS Safety Report 19216333 (Version 1)
Quarter: 2021Q2

REPORT INFORMATION
  Report Type: Spontaneous
  Country: US (occurrence: US)
  Receive Date: 20210504
  Receipt Date: 20210504
  Transmission Date: 20210717
  Serious: Yes (Hospitalization)
  Sender: FDA-Public Use
  Company Number: None

PATIENT
  Age: 66 Year
  Sex: Male

DRUGS (2)
  1. LETAIRIS [Suspect]
     Active Substance: AMBRISENTAN
     Indication: PULMONARY HYPERTENSION
  2. SILDENAFIL. [Suspect]
     Active Substance: SILDENAFIL

REACTIONS (3)
  - Dizziness [None]
  - Palpitations [None]
  - Pulmonary hypertension [None]

NARRATIVE: CASE EVENT DATE: 20210502
